FAERS Safety Report 6162557-2 (Version None)
Quarter: 2009Q2

REPORT INFORMATION
  Report Type: 
  Country: None (occurrence: None)
  Receive Date: 20090421
  Receipt Date: 20090410
  Transmission Date: 20091009
  Serious: Yes (Hospitalization)
  Sender: FDA-Public Use
  Company Number: JP-PFIZER INC-2008005995

PATIENT
  Sex: Male
  Weight: 74.3 kg

DRUGS (2)
  1. PLACEBO (PREGABALIN) [Suspect]
     Indication: DIABETIC NEUROPATHY
     Dosage: 0 MG, 2X/DAY
     Route: 048
     Dates: start: 20071211, end: 20080117
  2. NOVOLIN N [Suspect]
     Route: 058
     Dates: start: 20071028

REACTIONS (1)
  - ATRIAL FIBRILLATION [None]
